FAERS Safety Report 18400749 (Version 1)
Quarter: 2020Q4

REPORT INFORMATION
  Report Type: Spontaneous
  Country: DE (occurrence: DE)
  Receive Date: 20201019
  Receipt Date: 20201019
  Transmission Date: 20210114
  Serious: Yes (Other)
  Sender: FDA-Public Use
  Company Number: DE-SA-2020SA292709

PATIENT

DRUGS (5)
  1. FLUOROURACIL. [Interacting]
     Active Substance: FLUOROURACIL
     Dosage: 400 MG/M2, QCY, ON DAY 1 OF EACH TWO-WEEK CYCLE
     Route: 040
  2. FLUOROURACIL. [Interacting]
     Active Substance: FLUOROURACIL
     Indication: COLORECTAL CANCER STAGE IV
     Dosage: 2400 MG/M2, QCY, ON DAY 1 OF EACH TWO-WEEK CYCLE
     Route: 040
  3. LEUCOVORIN [FOLINIC ACID] [Suspect]
     Active Substance: LEUCOVORIN
     Indication: COLORECTAL CANCER STAGE IV
     Dosage: 400 MG/M2, QCY, ON DAY 1 OF EACH TWO-WEEK CYCLE
  4. SELINEXOR [Interacting]
     Active Substance: SELINEXOR
     Indication: COLORECTAL CANCER STAGE IV
     Dosage: 40 MG, ESCALATING DOSES
     Route: 048
  5. OXALIPLATIN. [Suspect]
     Active Substance: OXALIPLATIN
     Indication: COLORECTAL CANCER STAGE IV
     Dosage: 85 MG/M2, QCY, ON DAY 1 OF EACH TWO-WEEK CYCLE

REACTIONS (3)
  - Toxicity to various agents [Unknown]
  - Acute coronary syndrome [Unknown]
  - Drug interaction [Unknown]
